FAERS Safety Report 18584351 (Version 2)
Quarter: 2021Q1

REPORT INFORMATION
  Report Type: Other
  Country: US (occurrence: US)
  Receive Date: 20201207
  Receipt Date: 20210323
  Transmission Date: 20210419
  Serious: Yes (Death)
  Sender: FDA-Public Use
  Company Number: US-ROCHE-2726734

PATIENT
  Age: 81 Year
  Sex: Male

DRUGS (4)
  1. ZELBORAF [Suspect]
     Active Substance: VEMURAFENIB
     Indication: ANAEMIA
  2. ZELBORAF [Suspect]
     Active Substance: VEMURAFENIB
     Indication: COLON CANCER
     Route: 058
  3. ZELBORAF [Suspect]
     Active Substance: VEMURAFENIB
     Indication: FATIGUE
     Dosage: TAKE 4 TABLET(S) BY MOUTH EVERY 12 HOURS
     Route: 048
  4. ZELBORAF [Suspect]
     Active Substance: VEMURAFENIB
     Indication: MULTIPLE SCLEROSIS

REACTIONS (2)
  - Death [Fatal]
  - Off label use [Unknown]

NARRATIVE: CASE EVENT DATE: 20201112
